FAERS Safety Report 7579201-X (Version None)
Quarter: 2011Q2

REPORT INFORMATION
  Report Type: 
  Country: None (occurrence: None)
  Receive Date: 20110628
  Receipt Date: 20110614
  Transmission Date: 20111010
  Serious: Yes (Other)
  Sender: FDA-Public Use
  Company Number: CN-BAYER-2011-051234

PATIENT
  Sex: Male

DRUGS (3)
  1. SODIUM CHLORIDE [Concomitant]
  2. AVELOX [Suspect]
     Indication: IDIOPATHIC PNEUMONIA SYNDROME
     Dosage: 400 MG, QD
     Route: 041
     Dates: start: 20100312
  3. AVELOX [Suspect]
     Indication: INFECTION

REACTIONS (2)
  - HYPOGLYCAEMIA [None]
  - ATRIAL FIBRILLATION [None]
